FAERS Safety Report 9898014 (Version 2)
Quarter: 2014Q1

REPORT INFORMATION
  Report Type: Report from Study
  Country: CN (occurrence: CN)
  Receive Date: 20140214
  Receipt Date: 20140327
  Transmission Date: 20141002
  Serious: Yes (Hospitalization)
  Sender: FDA-Public Use
  Company Number: CN-AMGEN-CHNCT2014010515

PATIENT
  Age: 29 Year
  Sex: Male

DRUGS (4)
  1. DARBEPOETIN ALFA [Suspect]
     Indication: NEPHROGENIC ANAEMIA
     Dosage: 10 MUG, QWK
     Route: 042
     Dates: start: 20131230
  2. EPOETIN ALFA [Concomitant]
     Indication: NEPHROGENIC ANAEMIA
     Dosage: 3000 IU/WEEK
     Route: 042
     Dates: start: 20131028, end: 20131208
  3. TRIMETAZIDINE DIHYDROCHLORIDE [Concomitant]
     Dosage: 20 MG, TID
     Route: 065
  4. AMLODIPINE BESYLATE [Concomitant]
     Dosage: 5 MG, QD
     Route: 065

REACTIONS (5)
  - Arteriovenous fistula operation [Recovering/Resolving]
  - Congestive cardiomyopathy [Unknown]
  - Abdominal pain upper [Recovering/Resolving]
  - Arteriovenous fistula occlusion [Recovering/Resolving]
  - Arteriovenous fistula occlusion [Recovered/Resolved]
